FAERS Safety Report 5776549-6 (Version None)
Quarter: 2008Q2

REPORT INFORMATION
  Report Type: 
  Country: None (occurrence: None)
  Receive Date: 20080618
  Receipt Date: 20080327
  Transmission Date: 20081010
  Serious: Yes (Hospitalization)
  Sender: FDA-Public Use
  Company Number: FR-AVENTIS-200812222FR

PATIENT
  Age: 71 Year
  Sex: Male

DRUGS (7)
  1. LOVENOX [Suspect]
     Route: 058
     Dates: start: 20080102, end: 20080201
  2. VANCOMYCIN HCL [Suspect]
     Route: 042
     Dates: start: 20080120, end: 20080201
  3. VFEND [Suspect]
     Route: 042
     Dates: start: 20080122, end: 20080201
  4. CIFLOX                             /00697201/ [Suspect]
     Indication: PNEUMONIA
     Route: 042
     Dates: start: 20080114, end: 20080128
  5. CIFLOX                             /00697201/ [Suspect]
     Indication: HYPERTHERMIA
     Route: 042
     Dates: start: 20080114, end: 20080128
  6. TAZOCILLINE [Suspect]
     Indication: PNEUMONIA
     Route: 042
     Dates: start: 20080114, end: 20080128
  7. TAZOCILLINE [Suspect]
     Indication: HYPERTHERMIA
     Route: 042
     Dates: start: 20080114, end: 20080128

REACTIONS (1)
  - RENAL FAILURE ACUTE [None]
